FAERS Safety Report 9030523 (Version 4)
Quarter: 2013Q1

REPORT INFORMATION
  Report Type: Spontaneous
  Country: JP (occurrence: JP)
  Receive Date: 20130122
  Receipt Date: 20130301
  Transmission Date: 20140127
  Serious: Yes (Life-Threatening, Hospitalization, Other)
  Sender: FDA-Public Use
  Company Number: JP-PFIZER INC-2013024720

PATIENT
  Age: 61 Year
  Sex: Female
  Weight: 40 kg

DRUGS (11)
  1. LYRICA [Suspect]
     Indication: POST HERPETIC NEURALGIA
     Dosage: 225 MG/DAY
     Route: 048
  2. NEORAL [Suspect]
     Dosage: UNK
     Route: 048
  3. TAKEPRON [Suspect]
     Dosage: UNK
     Route: 048
  4. DOGMATYL [Suspect]
     Dosage: UNK
     Route: 048
  5. PAXIL [Suspect]
     Dosage: UNK
     Route: 048
  6. YOKUKAN-SAN [Suspect]
     Dosage: UNK
  7. MUCOSTA [Concomitant]
     Dosage: UNK
     Route: 048
  8. PREDNISOLONE [Concomitant]
     Dosage: UNK
     Route: 048
  9. LIPITOR [Concomitant]
     Dosage: UNK
     Route: 048
  10. EPADEL [Concomitant]
     Dosage: UNK
     Route: 048
  11. ACTONEL [Concomitant]
     Dosage: UNK
     Route: 048

REACTIONS (2)
  - Anaemia [Recovering/Resolving]
  - Aplasia pure red cell [Unknown]
